FAERS Safety Report 13981341 (Version 1)
Quarter: 2017Q3

REPORT INFORMATION
  Report Type: Spontaneous
  Country: US (occurrence: US)
  Receive Date: 20170916
  Receipt Date: 20170916
  Transmission Date: 20171128
  Serious: Yes (Death, Life-Threatening, Hospitalization, Disabling)
  Sender: FDA-Public Use
  Company Number: None

PATIENT
  Sex: Female
  Weight: 58.5 kg

DRUGS (4)
  1. PREDNISONE. [Suspect]
     Active Substance: PREDNISONE
     Indication: NASOPHARYNGITIS
     Route: 048
     Dates: start: 20020520, end: 20170916
  2. PREDNISONE. [Suspect]
     Active Substance: PREDNISONE
     Indication: RESPIRATORY TRACT INFECTION
     Route: 048
     Dates: start: 20020520, end: 20170916
  3. FORADIL [Concomitant]
     Active Substance: FORMOTEROL FUMARATE
  4. PREDNISONE. [Suspect]
     Active Substance: PREDNISONE
     Indication: WHEEZING
     Route: 048
     Dates: start: 20020520, end: 20170916

REACTIONS (12)
  - Lung hernia [None]
  - Rib fracture [None]
  - Resuscitation [None]
  - Pulmonary haemorrhage [None]
  - Asphyxia [None]
  - Skin striae [None]
  - Adrenal insufficiency [None]
  - Osteoporosis [None]
  - Intervertebral disc protrusion [None]
  - Weight increased [None]
  - Impaired healing [None]
  - Spinal fracture [None]

NARRATIVE: CASE EVENT DATE: 20020827
